FAERS Safety Report 17267127 (Version 3)
Quarter: 2020Q3

REPORT INFORMATION
  Report Type: Spontaneous
  Country: US (occurrence: US)
  Receive Date: 20200114
  Receipt Date: 20200903
  Transmission Date: 20201102
  Serious: Yes (Other)
  Sender: FDA-Public Use
  Company Number: US-GILEAD-2020-0445922

PATIENT
  Age: 54 Year
  Sex: Male

DRUGS (1)
  1. ATRIPLA [Suspect]
     Active Substance: EFAVIRENZ\EMTRICITABINE\TENOFOVIR DISOPROXIL FUMARATE
     Indication: HIV INFECTION
     Dosage: UNK
     Route: 048
     Dates: start: 2008, end: 2019

REACTIONS (15)
  - Fracture [Unknown]
  - Bone disorder [Unknown]
  - Back pain [Not Recovered/Not Resolved]
  - Anhedonia [Not Recovered/Not Resolved]
  - Pain [Not Recovered/Not Resolved]
  - Arthritis [Not Recovered/Not Resolved]
  - Anxiety [Not Recovered/Not Resolved]
  - Osteopenia [Not Recovered/Not Resolved]
  - Compression fracture [Unknown]
  - Gait disturbance [Not Recovered/Not Resolved]
  - Bone density decreased [Unknown]
  - Intervertebral disc degeneration [Not Recovered/Not Resolved]
  - Arthralgia [Not Recovered/Not Resolved]
  - Economic problem [Not Recovered/Not Resolved]
  - Emotional distress [Not Recovered/Not Resolved]

NARRATIVE: CASE EVENT DATE: 20170727
